FAERS Safety Report 23683884 (Version 1)
Quarter: 2024Q1

REPORT INFORMATION
  Report Type: Spontaneous
  Country: US (occurrence: None)
  Receive Date: 20240328
  Receipt Date: 20240328
  Transmission Date: 20240410
  Serious: Yes (Other)
  Sender: FDA-Public Use
  Company Number: None

PATIENT
  Age: 72 Year
  Sex: Female

DRUGS (6)
  1. XDEMVY [Suspect]
     Active Substance: LOTILANER
     Indication: Blepharitis
     Dosage: 1 DROP INTO BOTH EYES BID OPHTHALMIC?
     Route: 047
     Dates: start: 20240228
  2. MELATONIN [Concomitant]
     Active Substance: MELATONIN
  3. ROSUVASTATIN [Concomitant]
     Active Substance: ROSUVASTATIN
  4. TIMOLOL MALEATE [Concomitant]
     Active Substance: TIMOLOL MALEATE
  5. TRIAMTERENE [Concomitant]
     Active Substance: TRIAMTERENE
  6. VIATAMIN D3 [Concomitant]

REACTIONS (1)
  - Vision blurred [None]

NARRATIVE: CASE EVENT DATE: 20240307
